FAERS Safety Report 8463914 (Version 3)
Quarter: 2012Q4

REPORT INFORMATION
  Report Type: 
  Country: JP (occurrence: JP)
  Receive Date: 20120316
  Receipt Date: 20121113
  Transmission Date: 20130627
  Serious: Yes (Other)
  Sender: FDA-Public Use
  Company Number: PHHY2012JP022713

PATIENT
  Age: 72 Year
  Sex: Male

DRUGS (3)
  1. DIOVAN [Suspect]
     Indication: HYPERTENSION
     Dosage: 80 mg, QD
     Route: 048
  2. CONIEL [Concomitant]
     Dosage: 8 mg, UNK
     Route: 048
  3. LIPITOR [Concomitant]
     Dosage: 10 mg, UNK
     Route: 048

REACTIONS (2)
  - Fall [Unknown]
  - Altered state of consciousness [Recovered/Resolved]
